FAERS Safety Report 12209070 (Version 2)
Quarter: 2016Q1

REPORT INFORMATION
  Report Type: Spontaneous
  Country: CH (occurrence: CH)
  Receive Date: 20160324
  Receipt Date: 20160329
  Transmission Date: 20160526
  Serious: Yes (Hospitalization, Other)
  Sender: FDA-Public Use
  Company Number: CH-PFIZER INC-2016167940

PATIENT
  Age: 82 Year
  Sex: Male

DRUGS (14)
  1. STILNOX [Suspect]
     Active Substance: ZOLPIDEM TARTRATE
     Dosage: 10 MG, DAILY
     Dates: start: 201512, end: 20160203
  2. PANTOZOL [Suspect]
     Active Substance: PANTOPRAZOLE SODIUM
     Dosage: 40 MG, DAILY
     Dates: start: 20151221, end: 20160203
  3. AMLODIPIN [Suspect]
     Active Substance: AMLODIPINE BESYLATE
     Dosage: 5 MG, DAILY
     Dates: start: 201601, end: 20160210
  4. PREDNISON [Concomitant]
     Active Substance: PREDNISONE
     Indication: PALPABLE PURPURA
     Dosage: 70 MG, UNK
     Dates: start: 20151201
  5. TRIATEC [Suspect]
     Active Substance: RAMIPRIL
     Dosage: 5 MG, 2X/DAY
     Dates: start: 20151224, end: 20160210
  6. PREDNISON [Concomitant]
     Active Substance: PREDNISONE
     Dosage: 25 MG, UNK
     Dates: start: 20160217
  7. CALCIMAGON-D3 [Concomitant]
     Active Substance: CALCIUM\CHOLECALCIFEROL
     Dosage: UNK
     Dates: start: 20151223, end: 20160205
  8. AUGMENTIN [Suspect]
     Active Substance: AMOXICILLIN\CLAVULANATE POTASSIUM
     Dosage: 1 G, 2X/DAY
     Dates: start: 20151230, end: 20160106
  9. XYZAL [Suspect]
     Active Substance: LEVOCETIRIZINE DIHYDROCHLORIDE
     Dosage: 5 MG, DAILY
     Dates: start: 20151221, end: 20160203
  10. LORAZEPAM. [Suspect]
     Active Substance: LORAZEPAM
     Dosage: UNK, AS NEEDED
     Dates: start: 201601, end: 20160203
  11. NOPIL [Suspect]
     Active Substance: SULFAMETHOXAZOLE\TRIMETHOPRIM
     Indication: LEUKOCYTURIA
     Dosage: 800 MG, 2X/DAY
     Route: 048
     Dates: start: 20151230, end: 20160205
  12. VITAMIN D3 WILD [Concomitant]
     Dosage: UNK
     Dates: start: 201601, end: 20160205
  13. ALDACTONE [Suspect]
     Active Substance: SPIRONOLACTONE
     Dosage: UNK, AS NEEDED
     Dates: start: 201601, end: 20160203
  14. RANIMED [Suspect]
     Active Substance: RANITIDINE HYDROCHLORIDE
     Dosage: 150 MG, DAILY
     Dates: start: 201601, end: 20160206

REACTIONS (1)
  - Drug-induced liver injury [Recovering/Resolving]

NARRATIVE: CASE EVENT DATE: 201602
